FAERS Safety Report 16223659 (Version 2)
Quarter: 2019Q2

REPORT INFORMATION
  Report Type: Spontaneous
  Country: JP (occurrence: JP)
  Receive Date: 20190422
  Receipt Date: 20190513
  Transmission Date: 20190711
  Serious: Yes (Death)
  Sender: FDA-Public Use
  Company Number: JP-JNJFOC-20190207627

PATIENT
  Age: 81 Year
  Sex: Male

DRUGS (3)
  1. REVLIMID [Concomitant]
     Active Substance: LENALIDOMIDE
     Indication: PRIMARY EFFUSION LYMPHOMA
     Route: 048
     Dates: start: 20190115
  2. DARZALEX [Suspect]
     Active Substance: DARATUMUMAB
     Indication: PRIMARY EFFUSION LYMPHOMA
     Route: 041
     Dates: start: 20190122, end: 20190219
  3. DEXAMETHASONE. [Concomitant]
     Active Substance: DEXAMETHASONE
     Indication: PRIMARY EFFUSION LYMPHOMA
     Route: 041
     Dates: start: 20190115

REACTIONS (3)
  - Cerebral infarction [Fatal]
  - Product use in unapproved indication [Unknown]
  - Off label use [Unknown]

NARRATIVE: CASE EVENT DATE: 20190122
